FAERS Safety Report 10728545 (Version 4)
Quarter: 2015Q3

REPORT INFORMATION
  Report Type: Report from Study
  Country: US (occurrence: US)
  Receive Date: 20150122
  Receipt Date: 20150804
  Transmission Date: 20151125
  Serious: Yes (Hospitalization, Other)
  Sender: FDA-Public Use
  Company Number: US-ALEXION PHARMACEUTICALS INC.-A201500133

PATIENT

DRUGS (1)
  1. SOLIRIS [Suspect]
     Active Substance: ECULIZUMAB
     Indication: PRODUCT USED FOR UNKNOWN INDICATION
     Dosage: UNK
     Route: 042
     Dates: start: 200710

REACTIONS (6)
  - Skin cancer [Not Recovered/Not Resolved]
  - Arthritis [Not Recovered/Not Resolved]
  - Deep vein thrombosis [Not Recovered/Not Resolved]
  - Back pain [Recovering/Resolving]
  - Transient ischaemic attack [Unknown]
  - Blood product transfusion dependent [Not Recovered/Not Resolved]

NARRATIVE: CASE EVENT DATE: 20150113
